FAERS Safety Report 4290355-3 (Version None)
Quarter: 2004Q1

REPORT INFORMATION
  Report Type: 
  Country: None (occurrence: None)
  Receive Date: 20040206
  Receipt Date: 20040206
  Transmission Date: 20041129
  Serious: Yes (Hospitalization)
  Sender: FDA-Public Use
  Company Number: None

PATIENT
  Age: 51 Year
  Sex: Male
  Weight: 86 kg

DRUGS (3)
  1. TRILEPTAL [Suspect]
     Indication: CONVULSION
     Dosage: 600 MG+900 MG QAM-QPM ORAL
     Route: 048
  2. PHENYTOIN [Suspect]
     Indication: CONVULSION
     Dosage: 100 MG QHS ORAL
     Route: 048
  3. GABAPENTIN [Concomitant]

REACTIONS (2)
  - ATAXIA [None]
  - CONFUSIONAL STATE [None]
